FAERS Safety Report 14576293 (Version 2)
Quarter: 2018Q1

REPORT INFORMATION
  Report Type: Spontaneous
  Country: FI (occurrence: FI)
  Receive Date: 20180227
  Receipt Date: 20180320
  Transmission Date: 20180509
  Serious: Yes (Hospitalization)
  Sender: FDA-Public Use
  Company Number: FI-CONCORDIA PHARMACEUTICALS INC.-E2B_00010138

PATIENT
  Age: 62 Year
  Sex: Female

DRUGS (10)
  1. AMLODIPINE [Concomitant]
     Active Substance: AMLODIPINE BESYLATE
     Dosage: 5,MG,DAILY
     Route: 048
  2. INFLECTRA [Concomitant]
     Active Substance: INFLIXIMAB-DYYB
     Dosage: 300,MG,CYCLICAL
     Route: 042
  3. PROLIA [Suspect]
     Active Substance: DENOSUMAB
     Indication: OSTEOPOROSIS
     Dosage: 60,MG,CYCLICAL
     Route: 058
     Dates: start: 20130801, end: 20170904
  4. ROSUVASTATIN. [Concomitant]
     Active Substance: ROSUVASTATIN
     Dosage: 5,MG,DAILY
     Route: 048
  5. MICARDIS [Concomitant]
     Active Substance: TELMISARTAN
     Dosage: 80,MG,DAILY
     Route: 048
  6. EMCONCOR [Concomitant]
     Active Substance: BISOPROLOL FUMARATE
     Dosage: 5,MG,DAILY
     Route: 048
  7. SOMAC [Concomitant]
     Active Substance: PANTOPRAZOLE SODIUM
     Dosage: 40,MG,DAILY
     Route: 048
  8. CALCICHEW D3 FORTE TABLET [Concomitant]
     Indication: PRODUCT USED FOR UNKNOWN INDICATION
     Dosage: 2,DF,DAILY
     Route: 048
  9. PREDNISOLONE. [Suspect]
     Active Substance: PREDNISOLONE
     Indication: RHEUMATOID ARTHRITIS
     Dosage: 5,MG,DAILY
     Route: 048
  10. BISPHOSPHONATE [Suspect]
     Active Substance: UNSPECIFIED INGREDIENT
     Indication: OSTEOPOROSIS
     Route: 048
     Dates: start: 20010101, end: 20090101

REACTIONS (2)
  - Wrist fracture [Recovered/Resolved with Sequelae]
  - Atypical femur fracture [Recovered/Resolved with Sequelae]

NARRATIVE: CASE EVENT DATE: 20160830
